FAERS Safety Report 25805262 (Version 1)
Quarter: 2025Q3

REPORT INFORMATION
  Report Type: Spontaneous
  Country: IN (occurrence: IN)
  Receive Date: 20250916
  Receipt Date: 20250916
  Transmission Date: 20251020
  Serious: Yes (Hospitalization, Other)
  Sender: CASPER PHARMA
  Company Number: IN-CASPERPHARMA-IN-2025RISLIT00442

PATIENT
  Age: 61 Year
  Sex: Male

DRUGS (1)
  1. NITROFURANTOIN [Suspect]
     Active Substance: NITROFURANTOIN
     Indication: Dysuria
     Route: 065

REACTIONS (15)
  - Cutaneous vasculitis [Recovering/Resolving]
  - Rash [Recovering/Resolving]
  - Scrotal swelling [Recovering/Resolving]
  - Scrotal pain [Recovering/Resolving]
  - Acute myocardial infarction [Recovering/Resolving]
  - Sinus rhythm [Recovering/Resolving]
  - Livedo reticularis [Recovering/Resolving]
  - Purpura [Recovering/Resolving]
  - Ulcer [Recovering/Resolving]
  - Necrosis [Recovering/Resolving]
  - Acute kidney injury [Recovering/Resolving]
  - Hepatic function abnormal [Recovering/Resolving]
  - Orchitis [Recovering/Resolving]
  - Mental status changes [Recovering/Resolving]
  - Product use in unapproved indication [Unknown]
